FAERS Safety Report 4456749-8 (Version None)
Quarter: 2004Q3

REPORT INFORMATION
  Report Type: 
  Country: None (occurrence: None)
  Receive Date: 20040921
  Receipt Date: 20040906
  Transmission Date: 20050211
  Serious: No
  Sender: FDA-Public Use
  Company Number: 2004AP04397

PATIENT
  Age: 82 Year
  Sex: Female

DRUGS (11)
  1. IRESSA [Suspect]
     Indication: LUNG NEOPLASM MALIGNANT
     Dosage: 250 MG DAILY PO
     Route: 048
     Dates: start: 20040726, end: 20040813
  2. RADIATION THERAPY [Concomitant]
  3. MEDICON [Concomitant]
  4. CODEINE PHOSPHATE [Concomitant]
  5. LASIX [Concomitant]
  6. LORELCO [Concomitant]
  7. URSO [Concomitant]
  8. PANTOSIN [Concomitant]
  9. GASMOTIN [Concomitant]
  10. PURSENNID [Concomitant]
  11. RHYTHMY [Concomitant]

REACTIONS (2)
  - EOSINOPHIL COUNT INCREASED [None]
  - PLATELET COUNT DECREASED [None]
